FAERS Safety Report 5465779-9 (Version None)
Quarter: 2007Q3

REPORT INFORMATION
  Report Type: 
  Country: None (occurrence: None)
  Receive Date: 20070924
  Receipt Date: 20070911
  Transmission Date: 20080115
  Serious: Yes (Other)
  Sender: FDA-Public Use
  Company Number: B0487540A

PATIENT
  Age: 52 Year
  Sex: Female

DRUGS (8)
  1. FLIXOTIDE [Suspect]
     Indication: ASTHMA
     Dosage: 500UG TWICE PER DAY
     Route: 055
     Dates: start: 20040724, end: 20040828
  2. BUDESONIDE [Concomitant]
     Dosage: 400UG TWICE PER DAY
     Dates: start: 20030101, end: 20040724
  3. NSAIDS [Concomitant]
  4. ACE INHIBITORS [Concomitant]
  5. VIRLIX [Concomitant]
  6. SINGULAIR [Concomitant]
     Dosage: 10UG PER DAY
  7. FORADIL [Concomitant]
  8. ENARENAL [Concomitant]
     Dosage: 10MG PER DAY

REACTIONS (10)
  - DYSPHAGIA [None]
  - DYSPHEMIA [None]
  - DYSPHONIA [None]
  - DYSPNOEA [None]
  - HYPERAESTHESIA [None]
  - HYPERSENSITIVITY [None]
  - LARYNGEAL OEDEMA [None]
  - PHARYNGEAL OEDEMA [None]
  - PRURITUS GENERALISED [None]
  - TYPE IV HYPERSENSITIVITY REACTION [None]
